FAERS Safety Report 4705768-2 (Version None)
Quarter: 2005Q2

REPORT INFORMATION
  Report Type: 
  Country: None (occurrence: None)
  Receive Date: 20050629
  Receipt Date: 20050616
  Transmission Date: 20051028
  Serious: Yes (Hospitalization)
  Sender: FDA-Public Use
  Company Number: SK-2005-009932

PATIENT
  Sex: Female

DRUGS (1)
  1. YASMIN [Suspect]
     Indication: ORAL CONTRACEPTION
     Dosage: 1 TAB(S),1X/DAY,ORAL
     Route: 048
     Dates: start: 20040723

REACTIONS (7)
  - BLINDNESS UNILATERAL [None]
  - BLOOD CHOLESTEROL INCREASED [None]
  - CHORIORETINITIS [None]
  - GLAUCOMA [None]
  - HERPES SIMPLEX SEROLOGY POSITIVE [None]
  - SCOTOMA [None]
  - TOXOPLASMOSIS [None]
